FAERS Safety Report 12688447 (Version 2)
Quarter: 2016Q4

REPORT INFORMATION
  Report Type: Spontaneous
  Country: US (occurrence: US)
  Receive Date: 20160826
  Receipt Date: 20161006
  Transmission Date: 20170207
  Serious: No
  Sender: FDA-Public Use
  Company Number: US-ASTRAZENECA-2016SE85774

PATIENT
  Sex: Female
  Weight: 53.5 kg

DRUGS (6)
  1. BYDUREON [Suspect]
     Active Substance: EXENATIDE
     Indication: TYPE 2 DIABETES MELLITUS
     Route: 058
     Dates: start: 201607
  2. LIPAZOL [Concomitant]
     Indication: TYPE 2 DIABETES MELLITUS
     Route: 048
  3. SIMVASTATIN. [Concomitant]
     Active Substance: SIMVASTATIN
     Indication: TYPE 2 DIABETES MELLITUS
     Route: 048
  4. LANTUS [Concomitant]
     Active Substance: INSULIN GLARGINE
     Indication: DIABETES MELLITUS
     Dosage: 12 UNITS, DAILY
     Route: 058
     Dates: start: 201607
  5. METFORMIN [Concomitant]
     Active Substance: METFORMIN HYDROCHLORIDE
     Indication: TYPE 2 DIABETES MELLITUS
     Route: 048
  6. GABEPENTIN [Concomitant]
     Indication: MIGRAINE
     Dosage: 100 MG IN THE MORNING AND 200 MG AT NIGHT
     Route: 048

REACTIONS (6)
  - Injection site mass [Not Recovered/Not Resolved]
  - Injection site extravasation [Unknown]
  - Nervousness [Unknown]
  - Feeling jittery [Unknown]
  - Weight increased [Unknown]
  - Injection site pruritus [Unknown]
